FAERS Safety Report 13988638 (Version 1)
Quarter: 2017Q3

REPORT INFORMATION
  Report Type: Spontaneous
  Country: GR (occurrence: GR)
  Receive Date: 20170919
  Receipt Date: 20170919
  Transmission Date: 20171128
  Serious: Yes (Hospitalization, Other)
  Sender: FDA-Public Use
  Company Number: GR-009507513-1706GRC001054

PATIENT
  Age: 62 Year
  Sex: Female

DRUGS (14)
  1. LOPRESSOR [Concomitant]
     Active Substance: METOPROLOL TARTRATE
     Dosage: 0.5 DF, BID (1/2 IN THE MORNING-1/2 AT NIGHT)
     Dates: end: 201708
  2. SEROLUX [Concomitant]
     Active Substance: SERTRALINE HYDROCHLORIDE
     Dosage: UNK
     Dates: start: 201708
  3. LOSEC (OMEPRAZOLE) [Concomitant]
     Dosage: UNK
     Dates: end: 201708
  4. INEGY [Suspect]
     Active Substance: EZETIMIBE\SIMVASTATIN
     Indication: BLOOD CHOLESTEROL INCREASED
     Dosage: UNK
     Route: 048
     Dates: end: 201708
  5. SALOSPIR [Concomitant]
     Active Substance: ASPIRIN
     Dosage: QD (AT NOON)
     Dates: end: 201708
  6. LOSEC (OMEPRAZOLE) [Concomitant]
     Dosage: UNK
     Dates: start: 201708
  7. LIPTRUZET [Suspect]
     Active Substance: ATORVASTATIN CALCIUM\EZETIMIBE
     Indication: BLOOD CHOLESTEROL INCREASED
     Dosage: 1 TABLET DAILY AT NIGHT
     Route: 048
     Dates: start: 20170602, end: 201708
  8. SALOSPIR [Concomitant]
     Active Substance: ASPIRIN
     Dosage: QD (AT NOON), REINITIATION
     Dates: start: 201708
  9. INEGY [Suspect]
     Active Substance: EZETIMIBE\SIMVASTATIN
     Dosage: UNK
     Route: 048
     Dates: start: 201708
  10. APROVEL [Concomitant]
     Active Substance: IRBESARTAN
     Dosage: UNK
     Dates: end: 201708
  11. APROVEL [Concomitant]
     Active Substance: IRBESARTAN
     Dosage: UNK, REINITIATION
     Dates: start: 201708
  12. LOPRESSOR [Concomitant]
     Active Substance: METOPROLOL TARTRATE
     Dosage: 0.5 DF, BID (1/2 IN THE MORNING-1/2 AT NIGHT), REINITIATION
     Dates: start: 201708
  13. SEROLUX [Concomitant]
     Active Substance: SERTRALINE HYDROCHLORIDE
     Dosage: UNK
     Dates: end: 201708
  14. LIPTRUZET [Suspect]
     Active Substance: ATORVASTATIN CALCIUM\EZETIMIBE
     Dosage: 1 TABLET DAILY AT NIGHT
     Route: 048
     Dates: start: 201708

REACTIONS (2)
  - Heart valve calcification [Not Recovered/Not Resolved]
  - Appendicitis [Unknown]
